FAERS Safety Report 4587902-0 (Version None)
Quarter: 2005Q1

REPORT INFORMATION
  Report Type: 
  Country: None (occurrence: None)
  Receive Date: 20050219
  Receipt Date: 20050216
  Transmission Date: 20050727
  Serious: Yes (Death)
  Sender: FDA-Public Use
  Company Number: PHBS2005JP02412

PATIENT
  Age: 73 Year
  Sex: Male

DRUGS (3)
  1. MIDAZOLAM [Concomitant]
     Indication: SEDATIVE THERAPY
  2. SIGMART [Concomitant]
     Indication: SEDATIVE THERAPY
  3. VOLTAREN [Suspect]
     Indication: WOUND COMPLICATION
     Route: 048

REACTIONS (5)
  - ASTHMA [None]
  - CARDIAC FAILURE [None]
  - FEELING ABNORMAL [None]
  - LOSS OF CONSCIOUSNESS [None]
  - MYOCARDIAL INFARCTION [None]
